FAERS Safety Report 8943876 (Version 1)
Quarter: 2012Q4

REPORT INFORMATION
  Report Type: 
  Country: US (occurrence: US)
  Receive Date: 20121204
  Receipt Date: 20121204
  Transmission Date: 20130627
  Serious: Yes (Other)
  Sender: FDA-Public Use
  Company Number: US-JNJFOC-20121113568

PATIENT
  Sex: Male
  Weight: 80.29 kg

DRUGS (2)
  1. DURAGESIC [Suspect]
     Indication: PAIN
     Route: 062
     Dates: start: 2007, end: 2007
  2. DURAGESIC [Suspect]
     Indication: PAIN
     Route: 062
     Dates: start: 201209

REACTIONS (3)
  - Intervertebral disc degeneration [Not Recovered/Not Resolved]
  - Wrong technique in drug usage process [Not Recovered/Not Resolved]
  - Product quality issue [Unknown]
